FAERS Safety Report 24035556 (Version 1)
Quarter: 2024Q3

REPORT INFORMATION
  Report Type: Spontaneous
  Country: US (occurrence: US)
  Receive Date: 20240701
  Receipt Date: 20240701
  Transmission Date: 20241017
  Serious: No
  Sender: BIOVITRUM
  Company Number: US-BIOVITRUM-2024-US-009312

PATIENT
  Age: 42 Year
  Sex: Female

DRUGS (1)
  1. VONJO [Suspect]
     Active Substance: PACRITINIB
     Indication: Hypereosinophilic syndrome
     Dosage: DAILY
     Route: 048
     Dates: start: 20240329

REACTIONS (3)
  - Arthralgia [Unknown]
  - Fatigue [Unknown]
  - Off label use [Not Recovered/Not Resolved]

NARRATIVE: CASE EVENT DATE: 20240329
